FAERS Safety Report 24404760 (Version 1)
Quarter: 2024Q4

REPORT INFORMATION
  Report Type: Spontaneous
  Country: US (occurrence: US)
  Receive Date: 20241007
  Receipt Date: 20241007
  Transmission Date: 20250114
  Serious: No
  Sender: JOHNSON AND JOHNSON
  Company Number: US-JNJFOC-20241001738

PATIENT
  Age: 53 Year
  Sex: Female

DRUGS (1)
  1. MENS ROGAINE EXTRA STRENGTH [Suspect]
     Active Substance: MINOXIDIL
     Indication: Alopecia
     Dosage: 2 ML OF THE PRODUCT 2 TIMES PER DAY 2 ML OF PRODUCT
     Route: 061
     Dates: start: 20240925

REACTIONS (4)
  - Product residue present [Not Recovered/Not Resolved]
  - Product use issue [Unknown]
  - Intentional product misuse [Unknown]
  - Overdose [Unknown]

NARRATIVE: CASE EVENT DATE: 20240925
